FAERS Safety Report 10717808 (Version 5)
Quarter: 2015Q1

REPORT INFORMATION
  Report Type: Spontaneous
  Country: US (occurrence: US)
  Receive Date: 20150116
  Receipt Date: 20150306
  Transmission Date: 20150721
  Serious: Yes (Hospitalization)
  Sender: FDA-Public Use
  Company Number: US-UNITED THERAPEUTICS-UNT-2015-000281

PATIENT
  Age: 40 Year
  Sex: Female
  Weight: 68.27 kg

DRUGS (3)
  1. COUMADIN [Concomitant]
     Active Substance: WARFARIN SODIUM
     Indication: PRODUCT USED FOR UNKNOWN INDICATION
  2. REMODULIN [Suspect]
     Active Substance: TREPROSTINIL
     Dosage: 0.072 ?G/KG, CONTINUING
     Route: 041
     Dates: start: 20110630
  3. REMODULIN [Suspect]
     Active Substance: TREPROSTINIL
     Indication: PULMONARY HYPERTENSION
     Dosage: 0.072 ?G/KG, CONTINUING
     Route: 041
     Dates: start: 20110630

REACTIONS (6)
  - Septic shock [Unknown]
  - Respiratory distress [Unknown]
  - Injection site haemorrhage [Unknown]
  - Device related infection [Unknown]
  - Injection site infection [Unknown]
  - Sickle cell anaemia [Unknown]

NARRATIVE: CASE EVENT DATE: 20150108
